FAERS Safety Report 6633328-5 (Version None)
Quarter: 2010Q1

REPORT INFORMATION
  Report Type: 
  Country: None (occurrence: None)
  Receive Date: 20100312
  Receipt Date: 20100309
  Transmission Date: 20100710
  Serious: Yes (Death, Other)
  Sender: FDA-Public Use
  Company Number: JP-WYE-H14024210

PATIENT
  Sex: Female
  Weight: 40 kg

DRUGS (10)
  1. MYLOTARG [Suspect]
     Indication: ACUTE MYELOID LEUKAEMIA
     Route: 042
     Dates: start: 20081219, end: 20081219
  2. MELPHALAN HYDROCHLORIDE [Suspect]
     Dosage: 140 MG/M^2
     Route: 042
     Dates: start: 20090201, end: 20090101
  3. PENTAMIDINE ISETHIONATE [Concomitant]
     Route: 041
     Dates: start: 20090302, end: 20090317
  4. PREDNISOLONE [Concomitant]
     Indication: LUNG DISORDER
     Route: 041
     Dates: start: 20090311, end: 20090319
  5. PIPERACILLIN AND TAZOBACTAM [Concomitant]
     Route: 041
     Dates: start: 20090312, end: 20090319
  6. MICAFUNGIN SODIUM [Concomitant]
     Route: 041
     Dates: start: 20090313, end: 20090319
  7. CARPERITIDE [Concomitant]
     Dosage: 0.1 MG/KG/MINUTE
     Route: 041
     Dates: start: 20090312, end: 20090316
  8. DOPAMINE HYDROCHLORIDE [Concomitant]
     Dosage: 3 UG/KG/MIN
     Route: 041
     Dates: start: 20090313, end: 20090320
  9. BUSULFEX [Suspect]
     Dosage: 0.8 MG/KG
     Route: 042
     Dates: start: 20090201, end: 20090101
  10. GANCICLOVIR SODIUM [Concomitant]
     Route: 041
     Dates: start: 20090222, end: 20090307

REACTIONS (2)
  - LUNG DISORDER [None]
  - VENOOCCLUSIVE LIVER DISEASE [None]
